FAERS Safety Report 22976022 (Version 2)
Quarter: 2023Q4

REPORT INFORMATION
  Report Type: Spontaneous
  Country: JP (occurrence: JP)
  Receive Date: 20230925
  Receipt Date: 20231004
  Transmission Date: 20240110
  Serious: Yes (Other)
  Sender: FDA-Public Use
  Company Number: JP-ORGANON-O2309JPN002462

PATIENT
  Age: 83 Year
  Sex: Female
  Weight: 52 kg

DRUGS (2)
  1. ALENDRONATE SODIUM [Suspect]
     Active Substance: ALENDRONATE SODIUM
     Indication: Osteoporosis
     Dosage: UNK
     Route: 048
  2. ELDECALCITOL [Suspect]
     Active Substance: ELDECALCITOL
     Indication: Osteoporosis
     Dosage: UNK
     Route: 065

REACTIONS (1)
  - Foot fracture [Recovering/Resolving]
